FAERS Safety Report 16880520 (Version 1)
Quarter: 2019Q4

REPORT INFORMATION
  Report Type: Spontaneous
  Country: US (occurrence: GB)
  Receive Date: 20191003
  Receipt Date: 20191003
  Transmission Date: 20200122
  Serious: Yes (Other)
  Sender: FDA-Public Use
  Company Number: US-JNJFOC-20190939204

PATIENT
  Age: 82 Year
  Sex: Male

DRUGS (4)
  1. XARELTO [Suspect]
     Active Substance: RIVAROXABAN
     Indication: ATRIAL FIBRILLATION
     Dosage: 20 MG
     Route: 048
     Dates: start: 201807
  2. SOTALOL. [Concomitant]
     Active Substance: SOTALOL
     Dosage: UNK
  3. AMOXALIN [Concomitant]
     Dosage: UNK
  4. AMOXICILLIN. [Concomitant]
     Active Substance: AMOXICILLIN
     Dosage: UNK

REACTIONS (7)
  - Dental care [Unknown]
  - Pain [Unknown]
  - Product dose omission [Unknown]
  - Post procedural swelling [Unknown]
  - Contusion [Recovered/Resolved]
  - Mouth cyst [Unknown]
  - Mouth haemorrhage [Unknown]

NARRATIVE: CASE EVENT DATE: 20190923
